FAERS Safety Report 23139369 (Version 5)
Quarter: 2023Q4

REPORT INFORMATION
  Report Type: Report from Study
  Country: RU (occurrence: RU)
  Receive Date: 20231102
  Receipt Date: 20231221
  Transmission Date: 20240109
  Serious: Yes (Death, Other)
  Sender: FDA-Public Use
  Company Number: RU-002147023-NVSC2022RU247261

PATIENT
  Age: 58 Year
  Sex: Female
  Weight: 57 kg

DRUGS (2)
  1. KISQALI [Suspect]
     Active Substance: RIBOCICLIB
     Indication: Breast cancer
     Dosage: 400 MG, QD
     Route: 048
     Dates: start: 20220714, end: 20220730
  2. KISQALI [Suspect]
     Active Substance: RIBOCICLIB
     Dosage: 400 MG, QD
     Route: 048
     Dates: start: 20220714, end: 20221122

REACTIONS (5)
  - HIV infection [Fatal]
  - Malignant neoplasm progression [Fatal]
  - Breast cancer [Fatal]
  - Asthenia [Fatal]
  - Leukopenia [Recovering/Resolving]

NARRATIVE: CASE EVENT DATE: 20220730
